FAERS Safety Report 9130902 (Version 1)
Quarter: 2013Q1

REPORT INFORMATION
  Report Type: Spontaneous
  Country: US (occurrence: US)
  Receive Date: 20130301
  Receipt Date: 20130301
  Transmission Date: 20140127
  Serious: No
  Sender: FDA-Public Use
  Company Number: US-MYLANLABS-2012S1019864

PATIENT
  Age: 64 Year
  Sex: Female

DRUGS (6)
  1. METOPROLOL TARTRATE TABLETS, USP [Suspect]
     Indication: PALPITATIONS
     Route: 048
  2. METOPROLOL TARTRATE TABLETS, USP [Suspect]
     Indication: PALPITATIONS
     Route: 048
     Dates: end: 201207
  3. DIOVAN [Concomitant]
     Indication: BLOOD PRESSURE INCREASED
     Route: 048
  4. ACIPHEX [Concomitant]
     Indication: GASTROOESOPHAGEAL REFLUX DISEASE
     Route: 048
  5. SYNTHROID [Concomitant]
     Indication: THYROID DISORDER
     Route: 048
  6. LOVAZA [Concomitant]
     Route: 048

REACTIONS (4)
  - Macular fibrosis [Not Recovered/Not Resolved]
  - Chromatopsia [Not Recovered/Not Resolved]
  - Vision blurred [Not Recovered/Not Resolved]
  - Fatigue [Recovered/Resolved]
